FAERS Safety Report 9318203 (Version 1)
Quarter: 2013Q2

REPORT INFORMATION
  Report Type: Spontaneous
  Country: US (occurrence: US)
  Receive Date: 20130530
  Receipt Date: 20130530
  Transmission Date: 20140414
  Serious: No
  Sender: FDA-Public Use
  Company Number: US-NOVEN-13US006527

PATIENT
  Sex: 0

DRUGS (3)
  1. DAYTRANA [Suspect]
     Indication: ATTENTION DEFICIT/HYPERACTIVITY DISORDER
     Dosage: 1/2 15 MG PATCH, QD
     Route: 062
     Dates: start: 20130104
  2. CORTISONE [Concomitant]
     Indication: SKIN IRRITATION
     Route: 061
  3. CORTISONE [Concomitant]
     Indication: APPLICATION SITE ERYTHEMA

REACTIONS (6)
  - Application site erythema [Not Recovered/Not Resolved]
  - Application site pruritus [Not Recovered/Not Resolved]
  - Off label use [Not Recovered/Not Resolved]
  - Expired drug administered [Not Recovered/Not Resolved]
  - Drug prescribing error [Not Recovered/Not Resolved]
  - Wrong technique in drug usage process [Not Recovered/Not Resolved]
